FAERS Safety Report 12610922 (Version 1)
Quarter: 2016Q3

REPORT INFORMATION
  Report Type: Report from Study
  Country: US (occurrence: US)
  Receive Date: 20160801
  Receipt Date: 20160801
  Transmission Date: 20161109
  Serious: Yes (Hospitalization)
  Sender: FDA-Public Use
  Company Number: US-ACTELION-A-NJ2016-138673

PATIENT
  Age: 69 Year
  Sex: Female

DRUGS (2)
  1. UPTRAVI [Suspect]
     Active Substance: SELEXIPAG
     Indication: PULMONARY HYPERTENSION
     Dosage: 200 MCG, BID
     Route: 048
     Dates: start: 20160518, end: 2016
  2. NORVASC [Concomitant]
     Active Substance: AMLODIPINE BESYLATE

REACTIONS (9)
  - Dyspnoea [Unknown]
  - Pain [Unknown]
  - Facial pain [Unknown]
  - Headache [Unknown]
  - Swelling face [Unknown]
  - Anxiety [Unknown]
  - Myalgia [Unknown]
  - Eye swelling [Unknown]
  - Eye pain [Unknown]
